FAERS Safety Report 13345439 (Version 1)
Quarter: 2017Q1

REPORT INFORMATION
  Report Type: Spontaneous
  Country: US (occurrence: US)
  Receive Date: 20170316
  Receipt Date: 20170316
  Transmission Date: 20170428
  Serious: Yes (Death)
  Sender: FDA-Public Use
  Company Number: None

PATIENT
  Age: 90 Year
  Sex: Female
  Weight: 54 kg

DRUGS (2)
  1. WARFARIN 5 MG [Suspect]
     Active Substance: WARFARIN
     Indication: ATRIAL FIBRILLATION
     Dosage: DAILY WMF
     Route: 048
  2. WARFARIN [Suspect]
     Active Substance: WARFARIN
     Indication: ATRIAL FIBRILLATION
     Dosage: DAILY ON TTSS
     Route: 048

REACTIONS (8)
  - Subdural haematoma [None]
  - International normalised ratio increased [None]
  - Fall [None]
  - Unresponsive to stimuli [None]
  - Head injury [None]
  - Blood pressure decreased [None]
  - Mental status changes [None]
  - Dysarthria [None]

NARRATIVE: CASE EVENT DATE: 20161126
